FAERS Safety Report 13082279 (Version 2)
Quarter: 2017Q1

REPORT INFORMATION
  Report Type: Spontaneous
  Country: US (occurrence: US)
  Receive Date: 20170103
  Receipt Date: 20170131
  Transmission Date: 20170428
  Serious: No
  Sender: FDA-Public Use
  Company Number: US-SHIRE-US201619309

PATIENT
  Age: 67 Year
  Sex: Female
  Weight: 46.26 kg

DRUGS (3)
  1. VITAMIN D3 [Concomitant]
     Active Substance: CHOLECALCIFEROL
     Indication: NUTRITIONAL SUPPLEMENTATION
     Dosage: UNK
     Route: 065
  2. XIIDRA [Suspect]
     Active Substance: LIFITEGRAST
     Indication: DRY EYE
     Dosage: 1 GTT, 2X/DAY:BID (BOTH EYES)
     Route: 047
     Dates: start: 20161109
  3. VITAMIN K [Concomitant]
     Active Substance: PHYTONADIONE
     Indication: NUTRITIONAL SUPPLEMENTATION
     Dosage: UNK
     Route: 065

REACTIONS (5)
  - Dysgeusia [Not Recovered/Not Resolved]
  - Product quality issue [Unknown]
  - Instillation site reaction [Recovered/Resolved]
  - Eye injury [Recovered/Resolved]
  - Instillation site pain [Not Recovered/Not Resolved]

NARRATIVE: CASE EVENT DATE: 201611
